FAERS Safety Report 21997970 (Version 2)
Quarter: 2023Q1

REPORT INFORMATION
  Report Type: Spontaneous
  Country: JP (occurrence: JP)
  Receive Date: 20230216
  Receipt Date: 20230301
  Transmission Date: 20230418
  Serious: Yes (Other)
  Sender: FDA-Public Use
  Company Number: JP-TEVA-2022-JP-2840146

PATIENT
  Age: 73 Year
  Sex: Male

DRUGS (2)
  1. AZILECT [Suspect]
     Active Substance: RASAGILINE MESYLATE
     Indication: Parkinson^s disease
     Route: 048
  2. ISTRADEFYLLINE [Concomitant]
     Active Substance: ISTRADEFYLLINE
     Indication: Product used for unknown indication
     Route: 065

REACTIONS (4)
  - Autonomic neuropathy [Unknown]
  - Cancer pain [Unknown]
  - Radiation associated pain [Unknown]
  - Radiotherapy [Unknown]

NARRATIVE: CASE EVENT DATE: 20221212
